FAERS Safety Report 9633254 (Version 1)
Quarter: 2013Q4

REPORT INFORMATION
  Report Type: Spontaneous
  Country: US (occurrence: None)
  Receive Date: 20131018
  Receipt Date: 20131018
  Transmission Date: 20140711
  Serious: Yes (Disabling)
  Sender: FDA-Public Use
  Company Number: None

PATIENT
  Age: 35 Year
  Sex: Female
  Weight: 65.77 kg

DRUGS (1)
  1. MIRENA IUD [Suspect]

REACTIONS (28)
  - Bacterial infection [None]
  - Dysgeusia [None]
  - Dyspepsia [None]
  - Gastrointestinal pain [None]
  - Back pain [None]
  - Chest discomfort [None]
  - Hepatic enzyme increased [None]
  - Hepatic cyst [None]
  - Fatigue [None]
  - Feeling abnormal [None]
  - Balance disorder [None]
  - Dizziness [None]
  - Amnesia [None]
  - Disorientation [None]
  - Loss of consciousness [None]
  - Nausea [None]
  - Asthenia [None]
  - Hypoaesthesia [None]
  - Hyperacusis [None]
  - Parosmia [None]
  - Visual impairment [None]
  - Eye irritation [None]
  - Throat irritation [None]
  - Gingival pain [None]
  - Dry mouth [None]
  - Palpitations [None]
  - Neck pain [None]
  - Hormone level abnormal [None]
